FAERS Safety Report 11163774 (Version 1)
Quarter: 2015Q2

REPORT INFORMATION
  Report Type: Spontaneous
  Country: US (occurrence: US)
  Receive Date: 20150604
  Receipt Date: 20150604
  Transmission Date: 20150821
  Serious: Yes (Other)
  Sender: FDA-Public Use
  Company Number: US-SUN PHARMACEUTICAL INDUSTRIES LTD-2015SUN00277

PATIENT

DRUGS (1)
  1. OXYCODONE HCL C-II TABS 5MG [Suspect]
     Active Substance: OXYCODONE HYDROCHLORIDE
     Indication: PAIN
     Dosage: 5 MG PER THREE HOURS INTERVAL
     Route: 048
     Dates: start: 20150115, end: 20150119

REACTIONS (4)
  - Urticaria [Recovered/Resolved]
  - Product substitution issue [Recovered/Resolved]
  - Hypersensitivity [Recovered/Resolved]
  - Obstructive airways disorder [Recovered/Resolved]

NARRATIVE: CASE EVENT DATE: 20150115
